FAERS Safety Report 6545449-6 (Version None)
Quarter: 2010Q1

REPORT INFORMATION
  Report Type: 
  Country: None (occurrence: None)
  Receive Date: 20100121
  Receipt Date: 20100118
  Transmission Date: 20100710
  Serious: Yes (Other)
  Sender: FDA-Public Use
  Company Number: CR-WYE-H13086510

PATIENT
  Age: 54 Year
  Sex: Female

DRUGS (1)
  1. TYGACIL [Suspect]
     Dosage: 100 MG (ONCE)
     Route: 042
     Dates: start: 20091201, end: 20091201

REACTIONS (1)
  - STEVENS-JOHNSON SYNDROME [None]
